FAERS Safety Report 6998830-5 (Version None)
Quarter: 2010Q3

REPORT INFORMATION
  Report Type: 
  Country: None (occurrence: None)
  Receive Date: 20100920
  Receipt Date: 20100602
  Transmission Date: 20110219
  Serious: Yes (Hospitalization, Other)
  Sender: FDA-Public Use
  Company Number: US-ASTRAZENECA-2009SE10786

PATIENT
  Age: 23219 Day
  Sex: Female
  Weight: 94.8 kg

DRUGS (5)
  1. SEROQUEL [Suspect]
     Indication: DEPRESSION
     Route: 048
     Dates: start: 20030508, end: 20040410
  2. FPIRONOLACTONE [Concomitant]
  3. MIRTACAPINE [Concomitant]
  4. HYDROXYZINE [Concomitant]
  5. BUSTIRONE [Concomitant]

REACTIONS (4)
  - CARDIAC DISORDER [None]
  - DIABETIC COMA [None]
  - DIABETIC KETOACIDOSIS [None]
  - TYPE 2 DIABETES MELLITUS [None]
